FAERS Safety Report 8965188 (Version 1)
Quarter: 2012Q4

REPORT INFORMATION
  Report Type: 
  Country: US (occurrence: US)
  Receive Date: 20121213
  Receipt Date: 20121213
  Transmission Date: 20130627
  Serious: No
  Sender: FDA-Public Use
  Company Number: US-BRISTOL-MYERS SQUIBB COMPANY-16421273

PATIENT
  Age: 56 Year
  Sex: Female
  Weight: 108 kg

DRUGS (2)
  1. IXEMPRA [Suspect]
     Indication: BREAST CANCER
     Dates: start: 20120222
  2. TASIGNA [Concomitant]

REACTIONS (2)
  - Muscle spasms [Unknown]
  - Myalgia [Unknown]
